APPROVED DRUG PRODUCT: BUMETANIDE
Active Ingredient: BUMETANIDE
Strength: 0.25MG/ML
Dosage Form/Route: INJECTABLE;INJECTION
Application: A074332 | Product #001
Applicant: HOSPIRA INC
Approved: Oct 31, 1994 | RLD: No | RS: No | Type: DISCN